FAERS Safety Report 24006891 (Version 7)
Quarter: 2024Q4

REPORT INFORMATION
  Report Type: Report from Study
  Country: US (occurrence: US)
  Receive Date: 20240624
  Receipt Date: 20241106
  Transmission Date: 20250115
  Serious: Yes (Other)
  Sender: MYLAN
  Company Number: US-MYLANLABS-2023M1137002

PATIENT
  Sex: Female
  Weight: 131.54 kg

DRUGS (2)
  1. GLATIRAMER ACETATE [Suspect]
     Active Substance: GLATIRAMER ACETATE
     Indication: Multiple sclerosis
     Dosage: 40 MILLIGRAM, 3XW (THREE TIMES A WEEK)
     Route: 058
  2. HYDROXYCHLOROQUINE [Suspect]
     Active Substance: HYDROXYCHLOROQUINE
     Indication: Product used for unknown indication
     Dosage: UNK
     Route: 065

REACTIONS (23)
  - Systemic lupus erythematosus [Unknown]
  - Chest discomfort [Unknown]
  - Muscle contractions involuntary [Unknown]
  - Hypoaesthesia [Unknown]
  - Raynaud^s phenomenon [Unknown]
  - Peripheral coldness [Unknown]
  - Gait disturbance [Unknown]
  - Muscle tightness [Unknown]
  - Dysstasia [Unknown]
  - Skin discolouration [Unknown]
  - Muscle spasms [Unknown]
  - Feeling abnormal [Unknown]
  - Induration [Unknown]
  - Hypopnoea [Unknown]
  - Hypoaesthesia oral [Unknown]
  - Pharyngeal hypoaesthesia [Unknown]
  - Paraesthesia [Unknown]
  - Myalgia [Unknown]
  - Flushing [Unknown]
  - Injection site mass [Unknown]
  - Device difficult to use [Unknown]
  - Device issue [Unknown]
  - Device leakage [Unknown]
